FAERS Safety Report 7048913-9 (Version None)
Quarter: 2010Q4

REPORT INFORMATION
  Report Type: 
  Country: None (occurrence: None)
  Receive Date: 20101008
  Receipt Date: 20100928
  Transmission Date: 20110411
  Serious: Yes (Other)
  Sender: FDA-Public Use
  Company Number: US-1183586

PATIENT
  Sex: Female
  Weight: 70.3075 kg

DRUGS (4)
  1. TIMOLOL MALEATE [Suspect]
     Dosage: (1 GTT QD OU OPHTHALMIC)
     Route: 047
     Dates: start: 19900101, end: 20100901
  2. TIMOPTIC-XE [Concomitant]
  3. ANTITHYROID PREPARATIONS [Concomitant]
  4. SULAR [Concomitant]

REACTIONS (3)
  - CULTURE POSITIVE [None]
  - EYE DISCHARGE [None]
  - STAPHYLOCOCCAL INFECTION [None]
